FAERS Safety Report 6373545-5 (Version None)
Quarter: 2009Q3

REPORT INFORMATION
  Report Type: 
  Country: None (occurrence: None)
  Receive Date: 20090924
  Receipt Date: 20090424
  Transmission Date: 20100115
  Serious: No
  Sender: FDA-Public Use
  Company Number: US-ASTRAZENECA-2009UW04222

PATIENT
  Age: 431 Month
  Sex: Female
  Weight: 103 kg

DRUGS (9)
  1. SEROQUEL [Suspect]
     Indication: INSOMNIA
     Dosage: 100 MG TO 300 MG
     Route: 048
     Dates: start: 20061207, end: 20080301
  2. ABILIFY [Concomitant]
     Dates: start: 20070101
  3. ALPRAZOLAM [Concomitant]
     Dates: start: 20060601, end: 20080101
  4. AMITRIPTYLINE [Concomitant]
     Dosage: 25 MG TO 50 MG
     Dates: start: 20050701, end: 20080101
  5. WELLBUTRIN [Concomitant]
     Dosage: 150 MG TO 300 MG
     Dates: start: 20061101, end: 20070601
  6. SERTRALINE HCL [Concomitant]
     Dates: start: 20080101
  7. CLONAZEPAM [Concomitant]
     Dates: start: 20060501, end: 20080101
  8. TRAZODONE [Concomitant]
     Dates: start: 20060501, end: 20061101
  9. FLUOXETINE [Concomitant]
     Dates: start: 20060501, end: 20061001

REACTIONS (13)
  - ARTHRALGIA [None]
  - BACK PAIN [None]
  - BLOOD TRIGLYCERIDES INCREASED [None]
  - HYPERCHOLESTEROLAEMIA [None]
  - MULTIPLE ALLERGIES [None]
  - MUSCLE SPASMS [None]
  - NAUSEA [None]
  - SCIATICA [None]
  - SINUSITIS [None]
  - TYPE 2 DIABETES MELLITUS [None]
  - ULCER [None]
  - UPPER RESPIRATORY TRACT INFECTION [None]
  - VULVOVAGINAL CANDIDIASIS [None]
